FAERS Safety Report 26163807 (Version 1)
Quarter: 2025Q4

REPORT INFORMATION
  Report Type: Spontaneous
  Country: US (occurrence: None)
  Receive Date: 20251216
  Receipt Date: 20251216
  Transmission Date: 20260118
  Serious: No
  Sender: UCB
  Company Number: US-UCBSA-2025070919

PATIENT
  Age: 62 Year

DRUGS (4)
  1. BIMZELX [Suspect]
     Active Substance: BIMEKIZUMAB-BKZX
     Indication: Psoriasis
     Dosage: 320 MILLIGRAM, EV 4 WEEKS
  2. ZEPBOUND [Concomitant]
     Active Substance: TIRZEPATIDE
     Indication: Product used for unknown indication
     Dosage: 7.5 MG/0.5 PEN INJCTR
  3. BIOTIN [Concomitant]
     Active Substance: BIOTIN
     Indication: Product used for unknown indication
     Dosage: 10000 MICROGRAM
  4. DANDELION ROOT [Concomitant]
     Indication: Product used for unknown indication
     Dosage: 525 MILLIGRAM

REACTIONS (5)
  - Injection site pain [Unknown]
  - Dry skin [Unknown]
  - Fatigue [Unknown]
  - Device defective [Unknown]
  - Product dose omission issue [Unknown]
